FAERS Safety Report 25662305 (Version 1)
Quarter: 2025Q3

REPORT INFORMATION
  Report Type: Spontaneous
  Country: US (occurrence: US)
  Receive Date: 20250810
  Receipt Date: 20250810
  Transmission Date: 20251021
  Serious: Yes (Hospitalization, Other)
  Sender: ACCORD
  Company Number: US-Accord-498539

PATIENT
  Age: 17 Year
  Sex: Female

DRUGS (7)
  1. CARBOPLATIN [Suspect]
     Active Substance: CARBOPLATIN
     Indication: Pancreatoblastoma
  2. CISPLATIN [Suspect]
     Active Substance: CISPLATIN
     Indication: Pancreatoblastoma
  3. FLUOROURACIL [Suspect]
     Active Substance: FLUOROURACIL
     Indication: Pancreatoblastoma
  4. ETOPOSIDE [Suspect]
     Active Substance: ETOPOSIDE
     Indication: Pancreatoblastoma
  5. IFOSFAMIDE [Suspect]
     Active Substance: IFOSFAMIDE
     Indication: Pancreatoblastoma
  6. VINCRISTINE [Suspect]
     Active Substance: VINCRISTINE
     Indication: Pancreatoblastoma
  7. DOXORUBICIN [Suspect]
     Active Substance: DOXORUBICIN
     Indication: Pancreatoblastoma

REACTIONS (18)
  - Electrolyte imbalance [Unknown]
  - Arrhythmia [Unknown]
  - Migraine [Unknown]
  - Neuropathy peripheral [Unknown]
  - Nausea [Unknown]
  - Vomiting [Unknown]
  - Diarrhoea [Unknown]
  - Chest pain [Unknown]
  - Varices oesophageal [Unknown]
  - Haemorrhoids [Unknown]
  - Off label use [Unknown]
  - Oesophagitis [Unknown]
  - Abdominal pain [Unknown]
  - Drug intolerance [Unknown]
  - Constipation [Unknown]
  - Anxiety [Unknown]
  - Depression [Unknown]
  - Panic attack [Unknown]
